FAERS Safety Report 20577466 (Version 4)
Quarter: 2023Q2

REPORT INFORMATION
  Report Type: Report from Study
  Country: US (occurrence: US)
  Receive Date: 20220310
  Receipt Date: 20230614
  Transmission Date: 20230721
  Serious: Yes (Hospitalization, Other)
  Sender: FDA-Public Use
  Company Number: US-TAKEDA-2022TUS015103

PATIENT
  Sex: Female
  Weight: 89 kg

DRUGS (24)
  1. HUMAN IMMUNOGLOBULIN G [Suspect]
     Active Substance: HUMAN IMMUNOGLOBULIN G
     Indication: Immunodeficiency common variable
     Dosage: 13 GRAM, 1/WEEK
     Route: 058
     Dates: start: 20230320
  2. GAMMAGARD LIQUID [Suspect]
     Active Substance: HUMAN IMMUNOGLOBULIN G
     Indication: Immunosuppression
     Dosage: UNK, MONTHLY
     Route: 042
  3. DIPHENHYDRAMINE HYDROCHLORIDE [Concomitant]
     Active Substance: DIPHENHYDRAMINE HYDROCHLORIDE
  4. POTASSIUM [Concomitant]
     Active Substance: POTASSIUM
  5. PRAMIPEXOLE DIHYDROCHLORIDE [Concomitant]
     Active Substance: PRAMIPEXOLE DIHYDROCHLORIDE
  6. FERRIC AMMONIUM SULFATE [Concomitant]
  7. GAMASTAN [Concomitant]
     Active Substance: HUMAN IMMUNOGLOBULIN G
  8. ALBUTEROL SULFATE [Concomitant]
     Active Substance: ALBUTEROL SULFATE
  9. METOPROLOL SUCCINATE [Concomitant]
     Active Substance: METOPROLOL SUCCINATE
  10. FLUVOXAMINE MALEATE [Concomitant]
     Active Substance: FLUVOXAMINE MALEATE
  11. EPINEPHRINE [Concomitant]
     Active Substance: EPINEPHRINE
  12. WHITE PETROLATUM [Concomitant]
     Active Substance: PETROLATUM
  13. ENOXAPARIN SODIUM [Concomitant]
     Active Substance: ENOXAPARIN SODIUM
  14. LEVALBUTEROL HYDROCHLORIDE [Concomitant]
     Active Substance: LEVALBUTEROL HYDROCHLORIDE
  15. KINERET [Concomitant]
     Active Substance: ANAKINRA
  16. ACETAMINOPHEN [Concomitant]
     Active Substance: ACETAMINOPHEN
  17. BUMETANIDE [Concomitant]
     Active Substance: BUMETANIDE
  18. ESTRADIOL [Concomitant]
     Active Substance: ESTRADIOL
  19. Lmx [Concomitant]
  20. ZIPRASIDONE HYDROCHLORIDE [Concomitant]
     Active Substance: ZIPRASIDONE HYDROCHLORIDE
  21. CLONAZEPAM [Concomitant]
     Active Substance: CLONAZEPAM
  22. LAMOTRIGINE [Concomitant]
     Active Substance: LAMOTRIGINE
  23. WARFARIN SODIUM [Concomitant]
     Active Substance: WARFARIN SODIUM
  24. FERRIC AMMONIUM CITRATE [Concomitant]
     Active Substance: FERRIC AMMONIUM CITRATE
     Dosage: UNK
     Route: 065

REACTIONS (5)
  - Septic shock [Unknown]
  - Staphylococcal sepsis [Unknown]
  - Illness [Unknown]
  - Malaise [Unknown]
  - Rash [Not Recovered/Not Resolved]
